FAERS Safety Report 5202620-3 (Version None)
Quarter: 2007Q1

REPORT INFORMATION
  Report Type: 
  Country: None (occurrence: None)
  Receive Date: 20070109
  Receipt Date: 20070102
  Transmission Date: 20070707
  Serious: Yes (Death)
  Sender: FDA-Public Use
  Company Number: DE-PFIZER INC-2006150375

PATIENT
  Sex: Male

DRUGS (8)
  1. INSPRA [Suspect]
     Indication: CONGESTIVE CARDIOMYOPATHY
     Dosage: DAILY DOSE:50MG
     Route: 048
     Dates: start: 20061124, end: 20061130
  2. SPIRONOLACTONE [Concomitant]
     Route: 048
  3. RAMIPRIL [Concomitant]
  4. ASPIRIN [Concomitant]
  5. SIMVASTATIN [Concomitant]
     Dosage: DAILY DOSE:20MG
  6. AMIODARONE HCL [Concomitant]
     Dosage: DAILY DOSE:200MG
  7. PANTOZOL [Concomitant]
  8. TORSEMIDE [Concomitant]
     Dosage: DAILY DOSE:10MG

REACTIONS (6)
  - ACUTE HEPATIC FAILURE [None]
  - CARDIAC ARREST [None]
  - CONSTIPATION [None]
  - DIALYSIS [None]
  - RENAL FAILURE [None]
  - RIGHT VENTRICULAR FAILURE [None]
